FAERS Safety Report 9364941 (Version 1)
Quarter: 2013Q2

REPORT INFORMATION
  Report Type: Spontaneous
  Country: US (occurrence: US)
  Receive Date: 20130624
  Receipt Date: 20130624
  Transmission Date: 20140414
  Serious: Yes (Other)
  Sender: FDA-Public Use
  Company Number: US-MYLANLABS-2013S1012930

PATIENT
  Sex: 0

DRUGS (1)
  1. NAPROXEN [Suspect]

REACTIONS (1)
  - Ulcer haemorrhage [Not Recovered/Not Resolved]
